FAERS Safety Report 4807238-X (Version None)
Quarter: 2005Q4

REPORT INFORMATION
  Report Type: 
  Country: None (occurrence: None)
  Receive Date: 20051024
  Receipt Date: 20050913
  Transmission Date: 20060501
  Serious: Yes (Hospitalization)
  Sender: FDA-Public Use
  Company Number: US-BRACCO-BDI-007514

PATIENT
  Age: 55 Year
  Sex: Female

DRUGS (6)
  1. ISOVUE-128 [Suspect]
     Route: 042
     Dates: start: 20050913, end: 20050913
  2. ISOVUE-128 [Suspect]
     Route: 042
     Dates: start: 20050913, end: 20050913
  3. SOLU-MEDROL [Concomitant]
     Route: 050
     Dates: start: 20050913
  4. PREVACID [Concomitant]
     Route: 050
  5. READI-CAT [Concomitant]
     Route: 048
     Dates: start: 20050913, end: 20050913
  6. READI-CAT [Concomitant]
     Route: 048
     Dates: start: 20050912, end: 20050912

REACTIONS (11)
  - ABDOMINAL PAIN [None]
  - ARTHRALGIA [None]
  - BACK PAIN [None]
  - BLOOD AMYLASE INCREASED [None]
  - CHEST PAIN [None]
  - CHILLS [None]
  - HEPATITIS [None]
  - HYPERSENSITIVITY [None]
  - MUSCLE SPASMS [None]
  - PYREXIA [None]
  - VOMITING [None]
